FAERS Safety Report 20015948 (Version 1)
Quarter: 2021Q4

REPORT INFORMATION
  Report Type: Spontaneous
  Country: US (occurrence: None)
  Receive Date: 20211102
  Receipt Date: 20211102
  Transmission Date: 20220304
  Serious: No
  Sender: FDA-Public Use
  Company Number: None

PATIENT
  Age: 56 Year
  Sex: Male
  Weight: 71.5 kg

DRUGS (2)
  1. SPRYCEL [Suspect]
     Active Substance: DASATINIB
     Dates: end: 20211007
  2. PREDNISONE [Suspect]
     Active Substance: PREDNISONE
     Dates: end: 20211007

REACTIONS (2)
  - Platelet count increased [None]
  - Neutropenia [None]

NARRATIVE: CASE EVENT DATE: 20211011
